FAERS Safety Report 15592645 (Version 17)
Quarter: 2020Q2

REPORT INFORMATION
  Report Type: Report from Study
  Country: US (occurrence: US)
  Receive Date: 20181107
  Receipt Date: 20200610
  Transmission Date: 20200713
  Serious: Yes (Hospitalization)
  Sender: FDA-Public Use
  Company Number: PHEH2018US046933

PATIENT
  Age: 10 Year
  Sex: Female

DRUGS (2)
  1. ILARIS [Suspect]
     Active Substance: CANAKINUMAB
     Dosage: 60 MG, Q4W (EVERY 4 WEEKS)
     Route: 058
     Dates: start: 20180611
  2. ILARIS [Suspect]
     Active Substance: CANAKINUMAB
     Indication: CRYOPYRIN ASSOCIATED PERIODIC SYNDROME
     Dosage: 60 MG, Q4W (EVERY 4 WEEKS)
     Route: 058
     Dates: start: 20180611

REACTIONS (11)
  - Headache [Not Recovered/Not Resolved]
  - Pain [Recovering/Resolving]
  - Diarrhoea [Unknown]
  - Asthma [Unknown]
  - Pyrexia [Unknown]
  - Vomiting [Unknown]
  - Aphthous ulcer [Unknown]
  - Neuralgia [Unknown]
  - Dizziness [Unknown]
  - Migraine [Unknown]
  - Vertigo [Unknown]

NARRATIVE: CASE EVENT DATE: 20190510
